FAERS Safety Report 13267153 (Version 1)
Quarter: 2017Q1

REPORT INFORMATION
  Report Type: Spontaneous
  Country: US (occurrence: US)
  Receive Date: 20170223
  Receipt Date: 20170223
  Transmission Date: 20170428
  Serious: Yes (Disabling)
  Sender: FDA-Public Use
  Company Number: None

PATIENT
  Age: 13 Year
  Sex: Female
  Weight: 33.75 kg

DRUGS (4)
  1. PREVACID [Concomitant]
     Active Substance: LANSOPRAZOLE
  2. LEXAPRO [Concomitant]
     Active Substance: ESCITALOPRAM OXALATE
  3. MIRALAX [Suspect]
     Active Substance: POLYETHYLENE GLYCOL 3350
     Indication: CONSTIPATION
     Dosage: QUANTITY:1 OUNCE(S);?
     Route: 048
     Dates: start: 20150704, end: 20170218
  4. PROBIOTICS [Concomitant]
     Active Substance: PROBIOTICS NOS

REACTIONS (5)
  - Tic [None]
  - Anxiety [None]
  - Depression [None]
  - Renal disorder [None]
  - School refusal [None]

NARRATIVE: CASE EVENT DATE: 20150712
